FAERS Safety Report 7041766-4 (Version None)
Quarter: 2010Q4

REPORT INFORMATION
  Report Type: 
  Country: None (occurrence: None)
  Receive Date: 20101013
  Receipt Date: 20100614
  Transmission Date: 20110411
  Serious: No
  Sender: FDA-Public Use
  Company Number: US-ASTRAZENECA-2010SE27976

PATIENT
  Age: 689 Month
  Sex: Female
  Weight: 93.9 kg

DRUGS (9)
  1. SYMBICORT [Suspect]
     Dosage: 160/4.5, 2 PUFFS BID
     Route: 055
  2. CENTRUM SILVER [Concomitant]
  3. CITALOPRAM HYDROBROMIDE [Concomitant]
  4. VIT D [Concomitant]
  5. FUROSEMIDE [Concomitant]
  6. O2 [Concomitant]
  7. PREDNISONE [Concomitant]
  8. VENTALIN HFA [Concomitant]
  9. SPIRIVA [Concomitant]

REACTIONS (6)
  - CHEST DISCOMFORT [None]
  - DIZZINESS [None]
  - DRUG DOSE OMISSION [None]
  - DYSPNOEA [None]
  - FATIGUE [None]
  - WHEEZING [None]
